FAERS Safety Report 5578770-9 (Version None)
Quarter: 2007Q4

REPORT INFORMATION
  Report Type: 
  Country: None (occurrence: None)
  Receive Date: 20071228
  Receipt Date: 20071218
  Transmission Date: 20080405
  Serious: Yes (Other)
  Sender: FDA-Public Use
  Company Number: 163-21880-07050201

PATIENT
  Age: 65 Year
  Sex: Male

DRUGS (9)
  1. REVLIMID [Suspect]
     Indication: MULTIPLE MYELOMA
     Dosage: 25 MG, EVERYDAY X 21 DAYS, ORAL
     Route: 048
     Dates: start: 20061207, end: 20070511
  2. REVLIMID [Suspect]
     Indication: MULTIPLE MYELOMA
     Dosage: 25 MG, EVERYDAY X 21 DAYS, ORAL
     Route: 048
     Dates: start: 20070519, end: 20071119
  3. REVLIMID [Suspect]
     Indication: MULTIPLE MYELOMA
     Dosage: 25 MG, EVERYDAY X 21 DAYS, ORAL
     Route: 048
     Dates: start: 20071219
  4. ASPIRIN [Concomitant]
  5. MANNITOL [Concomitant]
  6. LANOXICAPS (DIGOXIN) [Concomitant]
  7. PRAVASTATIN [Concomitant]
  8. ZETIA [Concomitant]
  9. MULTIVITAMIN [Concomitant]

REACTIONS (7)
  - CONSTIPATION [None]
  - FATIGUE [None]
  - NEUTROPENIA [None]
  - ORAL PAIN [None]
  - OSTEONECROSIS [None]
  - WEIGHT DECREASED [None]
  - WHITE BLOOD CELL COUNT DECREASED [None]
